FAERS Safety Report 8857566 (Version 1)
Quarter: 2012Q4

REPORT INFORMATION
  Report Type: Report from Study
  Country: CA (occurrence: CA)
  Receive Date: 20121024
  Receipt Date: 20121024
  Transmission Date: 20130627
  Serious: Yes (Other)
  Sender: FDA-Public Use
  Company Number: CA-JNJFOC-20121008095

PATIENT
  Sex: Female
  Weight: 120 kg

DRUGS (3)
  1. REMICADE [Suspect]
     Indication: PSORIASIS
     Route: 042
     Dates: start: 20120515
  2. FLOVENT [Concomitant]
     Route: 055
  3. VENTOLIN [Concomitant]
     Route: 055

REACTIONS (2)
  - Asthma [Unknown]
  - Psoriasis [Unknown]
